FAERS Safety Report 4734810-8 (Version None)
Quarter: 2005Q3

REPORT INFORMATION
  Report Type: 
  Country: None (occurrence: None)
  Receive Date: 20050729
  Receipt Date: 20050719
  Transmission Date: 20060218
  Serious: Yes (Hospitalization, Other)
  Sender: FDA-Public Use
  Company Number: 2005094600

PATIENT
  Sex: Female
  Weight: 65.7716 kg

DRUGS (5)
  1. DILANTIN KAPSEAL [Suspect]
     Indication: EPILEPSY
     Dosage: 330 MG (2 IN 1 D), ORAL
     Route: 048
  2. CELEBREX [Suspect]
     Indication: NECK PAIN
     Dosage: ORAL
     Route: 048
  3. PHENOBARBITAL TAB [Suspect]
     Indication: EPILEPSY
     Dosage: 30 MG (1 IN 1 D)
     Route: 048
  4. VIOXX [Suspect]
     Indication: NECK PAIN
  5. PREMPRO [Concomitant]

REACTIONS (31)
  - ARTHRALGIA [None]
  - CHEST PAIN [None]
  - CONVULSION [None]
  - DRUG DOSE OMISSION [None]
  - DYSKINESIA [None]
  - DYSPEPSIA [None]
  - EXTRAPYRAMIDAL DISORDER [None]
  - FALL [None]
  - FOOD ALLERGY [None]
  - FOOD INTERACTION [None]
  - HORMONE LEVEL ABNORMAL [None]
  - IMPAIRED DRIVING ABILITY [None]
  - INTERVERTEBRAL DISC DEGENERATION [None]
  - MUSCLE TWITCHING [None]
  - MYOCARDIAL INFARCTION [None]
  - NECK INJURY [None]
  - NECK PAIN [None]
  - OBSTRUCTIVE AIRWAYS DISORDER [None]
  - PAIN IN EXTREMITY [None]
  - PALPITATIONS [None]
  - PHARMACEUTICAL PRODUCT COMPLAINT [None]
  - PHARYNGEAL OEDEMA [None]
  - PREGNANCY [None]
  - RASH GENERALISED [None]
  - SPEECH DISORDER [None]
  - STRESS [None]
  - TACHYCARDIA [None]
  - TEMPERATURE INTOLERANCE [None]
  - TREATMENT NONCOMPLIANCE [None]
  - TRIGGER FINGER [None]
  - URTICARIA [None]
